FAERS Safety Report 15739032 (Version 1)
Quarter: 2018Q4

REPORT INFORMATION
  Report Type: Spontaneous
  Country: IN (occurrence: IN)
  Receive Date: 20181219
  Receipt Date: 20181219
  Transmission Date: 20190205
  Serious: Yes (Life-Threatening, Hospitalization)
  Sender: FDA-Public Use
  Company Number: IN-IMPAX LABORATORIES, LLC-2018-IPXL-04219

PATIENT
  Age: 58 Year
  Sex: Male

DRUGS (4)
  1. AVIL                               /00085102/ [Suspect]
     Active Substance: PHENIRAMINE MALEATE
     Indication: ANAPHYLACTOID REACTION
     Dosage: UNK UNK, SINGLE
     Route: 065
  2. HYDROCORTISONE. [Suspect]
     Active Substance: HYDROCORTISONE
     Indication: ANAPHYLACTOID REACTION
     Dosage: UNK UNK, SINGLE
     Route: 065
  3. RANITIDINE. [Suspect]
     Active Substance: RANITIDINE
     Indication: ANAPHYLACTOID REACTION
     Dosage: UNK
     Route: 065
  4. ADRENACLICK [Suspect]
     Active Substance: EPINEPHRINE
     Indication: ANAPHYLACTOID REACTION
     Dosage: UNK UNK, SINGLE
     Route: 065

REACTIONS (2)
  - Bradycardia [Recovered/Resolved]
  - Cardiac arrest [Recovered/Resolved]
